FAERS Safety Report 18215795 (Version 1)
Quarter: 2020Q3

REPORT INFORMATION
  Report Type: Report from Study
  Country: US (occurrence: US)
  Receive Date: 20200901
  Receipt Date: 20200901
  Transmission Date: 20201103
  Serious: Yes (Other)
  Sender: FDA-Public Use
  Company Number: US-TAIHO ONCOLOGY  INC-EU-2020-03107

PATIENT
  Sex: Female

DRUGS (15)
  1. HYDRALAZINE [Concomitant]
     Active Substance: HYDRALAZINE HYDROCHLORIDE
  2. PANTOPRAZOLE [Concomitant]
     Active Substance: PANTOPRAZOLE
  3. ALLOPURINOL. [Concomitant]
     Active Substance: ALLOPURINOL
  4. MULTI V WOMEN [Concomitant]
  5. FISH OIL [Concomitant]
     Active Substance: FISH OIL
  6. LASTACAFT SOL [Concomitant]
  7. ASPIRIN. [Concomitant]
     Active Substance: ASPIRIN
  8. CELECOXIB. [Concomitant]
     Active Substance: CELECOXIB
  9. CRESTOR [Concomitant]
     Active Substance: ROSUVASTATIN CALCIUM
  10. DILTIAZEM. [Concomitant]
     Active Substance: DILTIAZEM
  11. LISINOPRIL. [Concomitant]
     Active Substance: LISINOPRIL
  12. METOPROL SUC [Concomitant]
  13. LONSURF [Suspect]
     Active Substance: TIPIRACIL HYDROCHLORIDE\TRIFLURIDINE
     Indication: COLON CANCER
     Dosage: CYCLE UNKNOWN
     Route: 048
     Dates: start: 20200706
  14. METFORMIN [Concomitant]
     Active Substance: METFORMIN HYDROCHLORIDE
  15. POTASSIUM GL [Concomitant]

REACTIONS (5)
  - Procedural pain [Unknown]
  - Fatigue [Unknown]
  - Skin texture abnormal [Unknown]
  - Diarrhoea [Unknown]
  - Spinal operation [Unknown]
